FAERS Safety Report 17267629 (Version 2)
Quarter: 2020Q1

REPORT INFORMATION
  Report Type: Spontaneous
  Country: US (occurrence: US)
  Receive Date: 20200114
  Receipt Date: 20200122
  Transmission Date: 20200409
  Serious: No
  Sender: FDA-Public Use
  Company Number: US-PFIZER INC-2019417491

PATIENT
  Age: 58 Year
  Sex: Male
  Weight: 77 kg

DRUGS (1)
  1. LYRICA CR [Suspect]
     Active Substance: PREGABALIN
     Dosage: 165 MG, 2X/DAY
     Route: 048

REACTIONS (3)
  - Back pain [Unknown]
  - Fall [Unknown]
  - Musculoskeletal pain [Unknown]
